FAERS Safety Report 8223695-3 (Version None)
Quarter: 2012Q1

REPORT INFORMATION
  Report Type: 
  Country: None (occurrence: None)
  Receive Date: 20120316
  Receipt Date: 20120306
  Transmission Date: 20120608
  Serious: Yes (Hospitalization)
  Sender: FDA-Public Use
  Company Number: TCI2011A03850

PATIENT
  Age: 79 Year
  Sex: Male

DRUGS (7)
  1. PRAVASTATIN [Concomitant]
  2. NORVASC [Concomitant]
  3. AMARYL [Concomitant]
  4. OMEPRAZOLE [Concomitant]
  5. FLIVAS (NAFTOPIDIL) [Concomitant]
  6. ACTOS [Suspect]
     Indication: DIABETES MELLITUS
     Dosage: 15 MG (15 MG,1 IN 1 D) PER ORAL
     Route: 048
     Dates: start: 20100406, end: 20110701
  7. DIVOAN (VALSARTAN) [Concomitant]

REACTIONS (6)
  - URETERIC CANCER [None]
  - TRANSITIONAL CELL CARCINOMA [None]
  - BLADDER TRANSITIONAL CELL CARCINOMA [None]
  - URINE ABNORMALITY [None]
  - METASTASES TO LYMPH NODES [None]
  - DYSURIA [None]
